FAERS Safety Report 7971038-2 (Version None)
Quarter: 2011Q4

REPORT INFORMATION
  Report Type: 
  Country: None (occurrence: None)
  Receive Date: 20111212
  Receipt Date: 20111212
  Transmission Date: 20120403
  Serious: Yes (Hospitalization)
  Sender: FDA-Public Use
  Company Number: None

PATIENT
  Age: 69 Year
  Sex: Male
  Weight: 73 kg

DRUGS (11)
  1. CARVEDILOL [Concomitant]
  2. FUROSEMIDE [Concomitant]
     Route: 048
  3. SYNTHROID [Concomitant]
     Route: 048
  4. LISINOPRIL [Concomitant]
     Route: 048
  5. SPIRONOLACTONE [Concomitant]
  6. GLIMEPIRIDE [Concomitant]
     Route: 048
  7. PRADAXA [Suspect]
     Indication: CORONARY ARTERIAL STENT INSERTION
     Dosage: 75 MG
     Route: 048
     Dates: start: 20110201, end: 20111120
  8. LIPITOR [Concomitant]
     Route: 048
  9. AMIODARONE HCL [Concomitant]
     Route: 048
  10. POTASSIUM CHLORIDE [Concomitant]
  11. ULORIC [Concomitant]
     Route: 048

REACTIONS (4)
  - CARDIAC FAILURE CONGESTIVE [None]
  - HYPOTENSION [None]
  - LOWER GASTROINTESTINAL HAEMORRHAGE [None]
  - RENAL FAILURE [None]
